FAERS Safety Report 8567839-2 (Version None)
Quarter: 2012Q3

REPORT INFORMATION
  Report Type: 
  Country: None (occurrence: None)
  Receive Date: 20120803
  Receipt Date: 20120726
  Transmission Date: 20120928
  Serious: Yes (Life-Threatening, Other)
  Sender: FDA-Public Use
  Company Number: BR-ROCHE-1093796

PATIENT
  Sex: Female
  Weight: 58 kg

DRUGS (13)
  1. PREDNISONE [Concomitant]
  2. ARAVA [Concomitant]
  3. OMEPRAZOLE [Concomitant]
  4. CODEINE [Concomitant]
  5. ENBREL [Concomitant]
  6. HUMIRA [Concomitant]
  7. REMICADE [Concomitant]
  8. CYMBALTA [Concomitant]
  9. ORENCIA [Concomitant]
  10. ACTEMRA [Suspect]
     Indication: RHEUMATOID ARTHRITIS
     Route: 042
     Dates: start: 20120613
  11. METHOTREXATE [Concomitant]
  12. ACTEMRA [Suspect]
     Dates: start: 20120710
  13. NAPROSYN [Concomitant]

REACTIONS (8)
  - THYROID NEOPLASM [None]
  - PULMONARY EMBOLISM [None]
  - LARYNGEAL OEDEMA [None]
  - CARDIO-RESPIRATORY ARREST [None]
  - LUNG DISORDER [None]
  - PSORIASIS [None]
  - ASTHMA [None]
  - DRUG INEFFECTIVE [None]
